FAERS Safety Report 7792179-9 (Version None)
Quarter: 2011Q4

REPORT INFORMATION
  Report Type: 
  Country: None (occurrence: None)
  Receive Date: 20111003
  Receipt Date: 20111003
  Transmission Date: 20120403
  Serious: Yes (Life-Threatening)
  Sender: FDA-Public Use
  Company Number: None

PATIENT
  Age: 67 Year
  Sex: Male

DRUGS (7)
  1. ASPIRIN [Concomitant]
     Route: 048
  2. GLIPIZIDE [Concomitant]
     Route: 048
  3. LISINOPRIL [Suspect]
     Indication: HYPERTENSION
     Dosage: 20 MG
     Route: 048
     Dates: start: 20090901, end: 20110925
  4. METFORMIN HCL [Concomitant]
     Route: 048
  5. FOLIC ACID [Concomitant]
     Route: 048
  6. LORATADINE [Concomitant]
     Route: 048
  7. MELOXICAM [Concomitant]
     Route: 048

REACTIONS (3)
  - LIP SWELLING [None]
  - FOOD ALLERGY [None]
  - SWOLLEN TONGUE [None]
